FAERS Safety Report 9687960 (Version 3)
Quarter: 2013Q4

REPORT INFORMATION
  Report Type: Report from Study
  Country: AU (occurrence: AU)
  Receive Date: 20131114
  Receipt Date: 20131211
  Transmission Date: 20140711
  Serious: Yes (Hospitalization, Other)
  Sender: FDA-Public Use
  Company Number: PHHY2013AU129216

PATIENT
  Age: 42 Year
  Sex: Female

DRUGS (28)
  1. ACLASTA [Suspect]
     Indication: OSTEOPOROSIS
     Dosage: 5 MG/100ML, YEARLY
     Route: 042
     Dates: start: 20100924
  2. ACLASTA [Suspect]
     Dosage: 5 MG/100ML, YEARLY
     Route: 042
     Dates: start: 20111019
  3. ACLASTA [Suspect]
     Dosage: 5 MG/100ML, YEARLY
     Route: 042
     Dates: start: 20121013
  4. ATROPINE SULPHATE [Concomitant]
     Dosage: 1 DF, QID EACH SIDE OF EYE
     Route: 047
  5. BACLOFEN [Concomitant]
     Dosage: 1 DF IN MORNING 37.5 MG IN NIGHT
     Route: 048
  6. BROMHEXINE HYDROCHLORIDE [Concomitant]
     Dosage: 5 ML, TID (8MG/5ML)
  7. CHOLECALCIFEROL [Concomitant]
     Indication: VITAMIN D DEFICIENCY
     Dosage: 1 DF, BID
     Route: 048
  8. CLONAZEPAM [Concomitant]
     Dosage: 3 DF, (1TAB IN MORNIG, 2 TAB IN NIGHT)
     Route: 048
  9. DOCUSATE SODIUM\SENNOSIDES [Concomitant]
     Dosage: 2 DF, BID (TUESDAY, THURSDAY, SUNDAY)
     Route: 048
  10. DIAZEPAM [Concomitant]
     Dosage: 1 DF(0.5-1 DF AS NEEDED)
     Route: 048
  11. FERRUM H [Concomitant]
     Dosage: 1 DF, QMO
     Route: 030
  12. HYDROCORTISONE ACETATE [Concomitant]
     Dosage: 1 DF, PRN
     Route: 061
  13. LABETALOL HYDROCHLORIDE [Concomitant]
     Dosage: 150 MG,(1TABLET IN MORNIG, 0.5 TAB IN NIGHT)
     Route: 048
  14. LACTULOSE [Concomitant]
     Dosage: 3.34G/5ML,20 ML BID (AS NEEDED)
     Route: 048
  15. LANSOPRAZOLE [Concomitant]
     Dosage: 1 DF, UNK
  16. LEVETIRACETAM [Concomitant]
     Dosage: 12 ML, BID (100 MG/ML)
     Route: 048
  17. MEDROXYPROGESTERONE ACETATE [Concomitant]
     Dosage: 1 DF, (1-21 OF 28 DAYS CYCLE)
  18. MOMETASONE FUROATE [Concomitant]
     Dosage: 1 DF, TO EACH NOSTRIL, 50 UG
  19. MOMETASONE FUROATE [Concomitant]
     Dosage: 0.1 %, OINTMENT
  20. MOVICOL [Concomitant]
     Dosage: 1 DF, (13.125G,350.7MG,46.6MG,178.5MG)
     Route: 048
  21. OMEPRAZOLE [Concomitant]
     Dosage: 1 DF, UNK
     Route: 048
  22. OSTELIN VITAMIN D + CALCIUM [Concomitant]
     Indication: OSTEOPOROTIC FRACTURE
     Dosage: 1 DF, 12.5 MCG/ 600MG
  23. PARACETAMOL [Concomitant]
     Dosage: 2 DF, TID (2 PM)
     Route: 048
  24. SUPRADYN                           /07480701/ [Concomitant]
     Dosage: 1 DF IN MORNING (11.1MG,13.9MG, 40MG. 8MG, 3 MG. 4MCG, 80MG, 7.5MCG, 10MG, 200MG, 100MG, 9MG, 1.5MG)
  25. TRANEXAMIC ACID [Concomitant]
     Indication: MENORRHAGIA
     Dosage: 2 DF, QID (FROM BEGINNING OF MENSTRUATION FOR UPTO 4 DAYS AS REQUIRED)
     Route: 048
  26. VALERIAAN [Concomitant]
     Dosage: 1 DF PRN ,(IN NIGHT)
     Route: 048
  27. PARACETAMOL WITH CODEINE PHOSPHATE [Concomitant]
     Dosage: 2 DF, QID
     Dates: start: 20130722
  28. PROMETHAZINE HYDROCHLORIDE [Concomitant]
     Dosage: 1 NOCTE PRN
     Route: 048
     Dates: start: 20120503

REACTIONS (6)
  - Status epilepticus [Recovered/Resolved]
  - Candida infection [Unknown]
  - Sinusitis [Recovered/Resolved]
  - Glucose tolerance impaired [Recovered/Resolved]
  - Menorrhagia [Recovering/Resolving]
  - Device difficult to use [Recovered/Resolved]
